FAERS Safety Report 9517795 (Version 1)
Quarter: 2013Q3

REPORT INFORMATION
  Report Type: Spontaneous
  Country: US (occurrence: US)
  Receive Date: 20130912
  Receipt Date: 20130912
  Transmission Date: 20140515
  Serious: No
  Sender: FDA-Public Use
  Company Number: US-009507513-1309USA003204

PATIENT
  Age: 66 Year
  Sex: Male

DRUGS (2)
  1. DULERA [Suspect]
     Indication: COUGH
     Dosage: INHALER, 100/5 MICROGRAM (FREQUENCY UNSPECIFIED)
     Route: 055
     Dates: start: 20130904
  2. LEVOFLOXACIN [Concomitant]

REACTIONS (1)
  - Headache [Not Recovered/Not Resolved]
